FAERS Safety Report 6493186-9 (Version None)
Quarter: 2009Q4

REPORT INFORMATION
  Report Type: 
  Country: None (occurrence: None)
  Receive Date: 20091214
  Receipt Date: 20091203
  Transmission Date: 20100525
  Serious: Yes (Other)
  Sender: FDA-Public Use
  Company Number: US-BAYER-200941820NA

PATIENT
  Age: 20 Year
  Sex: Female

DRUGS (1)
  1. MIRENA [Suspect]
     Indication: CONTRACEPTION
     Dosage: CONTINUOUS
     Route: 015
     Dates: start: 20090721, end: 20090824

REACTIONS (5)
  - BACK PAIN [None]
  - BLOOD BILIRUBIN INCREASED [None]
  - GALLBLADDER DISORDER [None]
  - OCULAR ICTERUS [None]
  - YELLOW SKIN [None]
